FAERS Safety Report 8909374 (Version 2)
Quarter: 2012Q4

REPORT INFORMATION
  Report Type: Spontaneous
  Country: US (occurrence: None)
  Receive Date: 20120816
  Receipt Date: 20120822
  Transmission Date: 20130627
  Serious: Yes (Hospitalization)
  Sender: FDA-Public Use
  Company Number: 2012080042

PATIENT
  Sex: Male

DRUGS (1)
  1. CESAMET [Suspect]
     Indication: NAUSEA

REACTIONS (4)
  - Pulmonary oedema [None]
  - Asthenia [None]
  - Asthenia [None]
  - Nausea [None]
